FAERS Safety Report 15726821 (Version 5)
Quarter: 2023Q1

REPORT INFORMATION
  Report Type: Report from Study
  Country: US (occurrence: None)
  Receive Date: 20181217
  Receipt Date: 20230216
  Transmission Date: 20230417
  Serious: Yes (Death, Life-Threatening, Hospitalization)
  Sender: FDA-Public Use
  Company Number: US-ROCHE-2231008

PATIENT
  Age: 43 Year
  Sex: Female
  Weight: 67.4 kg

DRUGS (42)
  1. PIRFENIDONE [Suspect]
     Active Substance: PIRFENIDONE
     Indication: Bronchiolitis obliterans syndrome
     Route: 065
     Dates: start: 20180324, end: 20180503
  2. ZOVIRAX [Concomitant]
     Active Substance: ACYCLOVIR
  3. ACCUNEB [Concomitant]
     Active Substance: ALBUTEROL SULFATE
     Dosage: 2.5-0.5 MG
  4. ACCUNEB [Concomitant]
     Active Substance: ALBUTEROL SULFATE
     Dosage: 1.25 MG/3 ML
  5. NORVASC [Concomitant]
     Active Substance: AMLODIPINE BESYLATE
  6. NORVASC [Concomitant]
     Active Substance: AMLODIPINE BESYLATE
  7. REFRESH PLUS [Concomitant]
     Active Substance: CARBOXYMETHYLCELLULOSE SODIUM
  8. CHOLECALCIFEROL [Concomitant]
     Active Substance: CHOLECALCIFEROL
     Dosage: 1000 UNIT
  9. DOCUSATE [Concomitant]
     Active Substance: DOCUSATE
  10. PEPCID AC [Concomitant]
     Active Substance: FAMOTIDINE
  11. FLUTICASONE [Concomitant]
     Active Substance: FLUTICASONE
  12. IMBRUVICA [Concomitant]
     Active Substance: IBRUTINIB
  13. ATIVAN [Concomitant]
     Active Substance: LORAZEPAM
  14. LOTEMAX [Concomitant]
     Active Substance: LOTEPREDNOL ETABONATE
  15. LOVENOX [Concomitant]
     Active Substance: ENOXAPARIN SODIUM
     Dosage: 60 MG/0.6ML
  16. MONTELUKAST [Concomitant]
     Active Substance: MONTELUKAST SODIUM
  17. MORPHINE SULFATE [Concomitant]
     Active Substance: MORPHINE SULFATE
     Dosage: 20MG/5ML
  18. ZOFRAN [Concomitant]
     Active Substance: ONDANSETRON HYDROCHLORIDE
  19. ROXICODONE [Concomitant]
     Active Substance: OXYCODONE HYDROCHLORIDE
  20. PROTONIX [Concomitant]
     Active Substance: PANTOPRAZOLE SODIUM
     Dosage: DELAYED RELEASE
  21. POLYETHYLENE GLYCOL [Concomitant]
     Active Substance: POLYETHYLENE GLYCOL
  22. NOXAFIL [Concomitant]
     Active Substance: POSACONAZOLE
     Dosage: ENTERIC COATED TABLET
  23. PROCHLORPERAZINE [Concomitant]
     Active Substance: PROCHLORPERAZINE
  24. RAPAMUNE [Concomitant]
     Active Substance: SIROLIMUS
     Dosage: 1 MG/ML
     Route: 048
  25. AUGMENTIN [Concomitant]
     Active Substance: AMOXICILLIN\CLAVULANATE POTASSIUM
  26. CIPRO [Concomitant]
     Active Substance: CIPROFLOXACIN HYDROCHLORIDE
  27. CLARITIN [Concomitant]
     Active Substance: LORATADINE
  28. FLONASE [Concomitant]
     Active Substance: FLUTICASONE PROPIONATE
  29. SODIUM CHLORIDE [Concomitant]
     Active Substance: SODIUM CHLORIDE
  30. BACTRIM [Concomitant]
     Active Substance: SULFAMETHOXAZOLE\TRIMETHOPRIM
     Dosage: 800-160 MCG, 80 TO 400 MG TABLET
  31. DUONEB [Concomitant]
     Active Substance: ALBUTEROL SULFATE\IPRATROPIUM BROMIDE
     Dosage: 0.5 MG-3 MG, 2.5 MG - 0.5 MG/3ML
  32. DITROPAN [Concomitant]
     Active Substance: OXYBUTYNIN CHLORIDE
  33. MIRALAX [Concomitant]
     Active Substance: POLYETHYLENE GLYCOL 3350
  34. SENOKOT [Concomitant]
     Active Substance: SENNOSIDES
  35. REFRESH PLUS [Concomitant]
     Active Substance: CARBOXYMETHYLCELLULOSE SODIUM
  36. COLACE [Concomitant]
     Active Substance: DOCUSATE SODIUM
  37. ROBITUSSIN (UNITED STATES) [Concomitant]
     Dosage: 100 MG/5 ML
     Route: 048
  38. LIDODERM [Concomitant]
     Active Substance: LIDOCAINE
     Dosage: PATCH
  39. MORPHINE [Concomitant]
     Active Substance: MORPHINE
     Dosage: 20 MG/5ML, 20MG/ML CONCENTARTE
     Route: 048
  40. COMPAZINE [Concomitant]
     Active Substance: PROCHLORPERAZINE MALEATE
  41. LACTULOSE [Concomitant]
     Active Substance: LACTULOSE
     Dosage: 10GM/15ML
  42. SULFAMETHOXAZOLE\TRIMETHOPRIM [Concomitant]
     Active Substance: SULFAMETHOXAZOLE\TRIMETHOPRIM
     Dosage: 80-400 MG

REACTIONS (8)
  - Acute respiratory failure [Fatal]
  - Pneumonia pseudomonal [Fatal]
  - Sepsis [Recovered/Resolved]
  - Pneumonia [Recovered/Resolved]
  - Pyrexia [Recovered/Resolved]
  - Septic shock [Unknown]
  - Acidosis [Unknown]
  - Hypercapnia [Unknown]

NARRATIVE: CASE EVENT DATE: 20181010
